APPROVED DRUG PRODUCT: RYTELO
Active Ingredient: IMETELSTAT SODIUM
Strength: EQ 188MG BASE/VIAL
Dosage Form/Route: POWDER;INTRAVENOUS
Application: N217779 | Product #002
Applicant: GERON CORP
Approved: Jun 6, 2024 | RLD: Yes | RS: Yes | Type: RX

PATENTS:
Patent 12442000 | Expires: Mar 15, 2033
Patent 9388416 | Expires: Sep 9, 2026
Patent 9388415 | Expires: Sep 9, 2026
Patent 9375485 | Expires: Mar 15, 2033
Patent 12171778 | Expires: Jun 16, 2039
Patent 7494982 | Expires: Dec 27, 2026

EXCLUSIVITY:
Code: ODE-482 | Date: Jun 6, 2031